FAERS Safety Report 4980826-6 (Version None)
Quarter: 2006Q2

REPORT INFORMATION
  Report Type: 
  Country: None (occurrence: None)
  Receive Date: 20060424
  Receipt Date: 20050928
  Transmission Date: 20061013
  Serious: Yes (Hospitalization)
  Sender: FDA-Public Use
  Company Number: US-MERCK-0509USA04893

PATIENT
  Age: 41 Year
  Sex: Male
  Weight: 123 kg

DRUGS (2)
  1. VIOXX [Suspect]
     Indication: RHEUMATOID ARTHRITIS
     Route: 048
     Dates: start: 20020715, end: 20041008
  2. VIOXX [Suspect]
     Indication: ARTHRALGIA
     Route: 048
     Dates: start: 20020715, end: 20041008

REACTIONS (20)
  - ANGINA UNSTABLE [None]
  - ARTHRALGIA [None]
  - BACK PAIN [None]
  - CHEST PAIN [None]
  - CORONARY ARTERY DISEASE [None]
  - CORONARY ARTERY STENOSIS [None]
  - DIZZINESS [None]
  - GASTRITIS [None]
  - LOSS OF CONSCIOUSNESS [None]
  - OSTEOARTHRITIS [None]
  - OVERDOSE [None]
  - PNEUMONIA [None]
  - POLYTRAUMATISM [None]
  - SLEEP APNOEA SYNDROME [None]
  - SWELLING FACE [None]
  - SYNCOPE [None]
  - THROAT IRRITATION [None]
  - TONSILLITIS [None]
  - ULCER [None]
  - VOMITING [None]
